FAERS Safety Report 12537366 (Version 1)
Quarter: 2016Q3

REPORT INFORMATION
  Report Type: Spontaneous
  Country: US (occurrence: US)
  Receive Date: 20160707
  Receipt Date: 20160707
  Transmission Date: 20161109
  Serious: Yes (Death, Life-Threatening, Hospitalization)
  Sender: FDA-Public Use
  Company Number: US-PFIZER INC-3138077

PATIENT
  Age: 83 Year
  Sex: Male
  Weight: 90.8 kg

DRUGS (11)
  1. CUBICIN [Suspect]
     Active Substance: DAPTOMYCIN
     Indication: BACTERIAL INFECTION
     Dosage: 600 MG, EVERY 24 HOURS, FREQ: 1 DAY; INTERVAL: 1
     Route: 042
     Dates: start: 20151208, end: 20151211
  2. HYDROCHLOROTHIAZIDE. [Concomitant]
     Active Substance: HYDROCHLOROTHIAZIDE
     Indication: HYPERTENSION
     Dosage: UNK
     Dates: end: 20151212
  3. TAFAMIDIS MEGLUMINE [Suspect]
     Active Substance: TAFAMIDIS MEGLUMINE
     Indication: CARDIOMYOPATHY
     Dosage: UNK
     Route: 048
     Dates: start: 20141229, end: 20151212
  4. ANCEF [Suspect]
     Active Substance: CEFAZOLIN SODIUM
     Indication: BACTERIAL INFECTION
     Dosage: 2 G, EVERY 8HOURS, FREQ: 3 DAY; INTERVAL: 1
     Route: 042
     Dates: start: 20151209, end: 20151213
  5. CEFEPIME HCL [Suspect]
     Active Substance: CEFEPIME HYDROCHLORIDE
     Indication: BACTERIAL INFECTION
     Dosage: 1000 MG, EVERY 12 HOURS, FREQ: 2 DAY; INTERVAL: 1
     Route: 042
     Dates: start: 20151209, end: 20151211
  6. DEMADEX/01036501/ [Concomitant]
     Indication: CARDIAC FAILURE
     Dosage: UNK
     Dates: end: 20151212
  7. LIPITOR [Concomitant]
     Active Substance: ATORVASTATIN CALCIUM
     Indication: HYPERCHOLESTEROLAEMIA
     Dosage: UNK
  8. NAFCILLIN [Suspect]
     Active Substance: NAFCILLIN\NAFCILLIN SODIUM
     Indication: BACTERIAL INFECTION
     Dosage: 2 G, FREQ: 1 HOUR; INTERVAL: 4
     Route: 042
     Dates: start: 20151213, end: 20151215
  9. PLACEBO [Suspect]
     Active Substance: UNSPECIFIED INGREDIENT
     Indication: CARDIOMYOPATHY
     Dosage: UNK
     Route: 048
     Dates: start: 20141229, end: 20151212
  10. COZAAR [Concomitant]
     Active Substance: LOSARTAN POTASSIUM
     Indication: HYPERTENSION
     Dosage: UNK
     Dates: end: 20151212
  11. XARELTO [Concomitant]
     Active Substance: RIVAROXABAN
     Indication: ATRIAL FIBRILLATION
     Dosage: UNK
     Dates: end: 20151212

REACTIONS (2)
  - Septic shock [Fatal]
  - Clostridium difficile colitis [Fatal]

NARRATIVE: CASE EVENT DATE: 20151213
